FAERS Safety Report 4651098-7 (Version None)
Quarter: 2005Q2

REPORT INFORMATION
  Report Type: 
  Country: None (occurrence: None)
  Receive Date: 20050503
  Receipt Date: 20050419
  Transmission Date: 20051028
  Serious: Yes (Hospitalization)
  Sender: FDA-Public Use
  Company Number: PHBS2005BR05656

PATIENT
  Age: 74 Year
  Sex: Female

DRUGS (1)
  1. GLEEVEC [Suspect]
     Indication: CHRONIC MYELOID LEUKAEMIA
     Route: 048
     Dates: start: 20000101

REACTIONS (4)
  - ADENOCARCINOMA PANCREAS [None]
  - BLOOD CHROMOGRANIN A INCREASED [None]
  - BLOOD GLUCAGON INCREASED [None]
  - ENDOCRINE NEOPLASM [None]
